FAERS Safety Report 22189456 (Version 2)
Quarter: 2023Q2

REPORT INFORMATION
  Report Type: Spontaneous
  Country: DE (occurrence: DE)
  Receive Date: 20230410
  Receipt Date: 20230515
  Transmission Date: 20230721
  Serious: Yes (Other)
  Sender: FDA-Public Use
  Company Number: DE-002147023-NVSC2023DE080386

PATIENT
  Sex: Male

DRUGS (1)
  1. AZOPT [Suspect]
     Active Substance: BRINZOLAMIDE
     Indication: Product used for unknown indication
     Dosage: 1 DRP, BID (1-0-1)
     Route: 065

REACTIONS (4)
  - Cataract [Not Recovered/Not Resolved]
  - Visual impairment [Unknown]
  - Dry eye [Unknown]
  - Foreign body sensation in eyes [Unknown]
